FAERS Safety Report 7336193-6 (Version None)
Quarter: 2011Q1

REPORT INFORMATION
  Report Type: 
  Country: None (occurrence: None)
  Receive Date: 20110307
  Receipt Date: 20110301
  Transmission Date: 20110831
  Serious: Yes (Hospitalization, Other)
  Sender: FDA-Public Use
  Company Number: US-ABBOTT-11P-163-0708857-00

PATIENT
  Sex: Female
  Weight: 74.91 kg

DRUGS (2)
  1. HUMIRA [Suspect]
     Indication: RHEUMATOID ARTHRITIS
     Route: 058
     Dates: start: 20050101, end: 20101101
  2. HUMIRA [Suspect]
     Route: 058
     Dates: start: 20101216

REACTIONS (3)
  - CHEST PAIN [None]
  - BACK PAIN [None]
  - PULMONARY EMBOLISM [None]
